FAERS Safety Report 7231224-6 (Version None)
Quarter: 2011Q1

REPORT INFORMATION
  Report Type: 
  Country: None (occurrence: None)
  Receive Date: 20110118
  Receipt Date: 20110114
  Transmission Date: 20110831
  Serious: Yes (Life-Threatening, Hospitalization, Other)
  Sender: FDA-Public Use
  Company Number: B0690036A

PATIENT
  Sex: Male

DRUGS (8)
  1. OMEPRAZOLE [Concomitant]
  2. TEMAZEPAM [Concomitant]
  3. AVODART [Suspect]
     Dosage: .5MG PER DAY
     Route: 048
  4. FRUSEMIDE [Concomitant]
  5. CLOPIDOGREL [Concomitant]
     Dosage: 75MG PER DAY
     Route: 048
  6. SIMVASTATIN [Concomitant]
  7. GTN SPRAY [Concomitant]
  8. ASPIRIN [Concomitant]
     Dosage: 75MG PER DAY
     Route: 048

REACTIONS (1)
  - MYOCARDIAL INFARCTION [None]
